FAERS Safety Report 10216451 (Version 1)
Quarter: 2014Q2

REPORT INFORMATION
  Report Type: Report from Study
  Country: FR (occurrence: FR)
  Receive Date: 20140604
  Receipt Date: 20140604
  Transmission Date: 20141212
  Serious: Yes (Hospitalization)
  Sender: FDA-Public Use
  Company Number: FR-JNJFOC-20140517324

PATIENT
  Age: 17 Year
  Sex: Female
  Weight: 46 kg

DRUGS (3)
  1. REMICADE [Suspect]
     Indication: CROHN^S DISEASE
     Route: 042
     Dates: start: 20101110, end: 20111219
  2. AZATHIOPRINE [Concomitant]
     Route: 065
  3. HUMIRA [Concomitant]
     Route: 065
     Dates: start: 20111219

REACTIONS (1)
  - Pyelonephritis acute [Recovered/Resolved]
